FAERS Safety Report 5160582-1 (Version None)
Quarter: 2006Q4

REPORT INFORMATION
  Report Type: 
  Country: None (occurrence: None)
  Receive Date: 20061129
  Receipt Date: 20061120
  Transmission Date: 20070319
  Serious: Yes (Hospitalization)
  Sender: FDA-Public Use
  Company Number: US-MERCK-0611USA05785

PATIENT
  Age: 53 Year
  Sex: Female

DRUGS (13)
  1. FOSAMAX [Suspect]
     Indication: OSTEOPOROSIS
     Route: 065
     Dates: start: 20060101, end: 20061101
  2. COUMADIN [Concomitant]
     Route: 065
  3. HUMALOG [Concomitant]
     Route: 065
  4. LANTUS [Concomitant]
     Route: 065
  5. LIPITOR [Concomitant]
     Route: 065
  6. LASIX [Concomitant]
     Route: 065
  7. KLOR-CON [Concomitant]
     Route: 065
  8. [THERAPY UNSPECIFIED] [Concomitant]
     Route: 065
  9. NEURONTIN [Concomitant]
     Route: 065
  10. DETROL LA [Concomitant]
     Route: 065
  11. ATENOLOL [Concomitant]
     Route: 065
  12. METOCLOPRAMIDE [Concomitant]
     Route: 065
  13. SUCRALFATE [Concomitant]
     Route: 065

REACTIONS (4)
  - ARTHROPATHY [None]
  - DYSGEUSIA [None]
  - HAEMATEMESIS [None]
  - OESOPHAGEAL DISORDER [None]
